FAERS Safety Report 7539952-X (Version None)
Quarter: 2011Q2

REPORT INFORMATION
  Report Type: 
  Country: None (occurrence: None)
  Receive Date: 20110610
  Receipt Date: 20110530
  Transmission Date: 20111010
  Serious: Yes (Hospitalization)
  Sender: FDA-Public Use
  Company Number: FR-SANOFI-AVENTIS-2011SA035247

PATIENT
  Age: 38 Year
  Sex: Female

DRUGS (2)
  1. CLOMID [Suspect]
     Indication: OVULATION INDUCTION
     Route: 048
     Dates: start: 20100801, end: 20110201
  2. GONAL-F [Suspect]
     Indication: OVULATION INDUCTION
     Route: 048
     Dates: start: 20100401, end: 20100701

REACTIONS (1)
  - LUNG CANCER METASTATIC [None]
